FAERS Safety Report 4663475-9 (Version None)
Quarter: 2005Q2

REPORT INFORMATION
  Report Type: 
  Country: None (occurrence: None)
  Receive Date: 20050517
  Receipt Date: 20050504
  Transmission Date: 20051028
  Serious: Yes (Hospitalization)
  Sender: FDA-Public Use
  Company Number: PT-JNJFOC-20050501402

PATIENT
  Sex: Female

DRUGS (8)
  1. INFLIXIMAB [Suspect]
     Dosage: 5 MG/KG
     Route: 042
  2. INFLIXIMAB [Suspect]
     Dosage: 5 MG/KG
     Route: 042
  3. INFLIXIMAB [Suspect]
     Dosage: 5 MG/KG
     Route: 042
  4. INFLIXIMAB [Suspect]
     Dosage: 5 MG/KG
     Route: 042
  5. INFLIXIMAB [Suspect]
     Dosage: 5 MG/KG
     Route: 042
  6. INFLIXIMAB [Suspect]
     Dosage: 5 MG/KG
     Route: 042
  7. INFLIXIMAB [Suspect]
     Dosage: 5 MG/KG
     Route: 042
  8. INFLIXIMAB [Suspect]
     Indication: VASCULITIS
     Dosage: 5 MG/KG
     Route: 042

REACTIONS (1)
  - CERVICAL DYSPLASIA [None]
